FAERS Safety Report 4399948-6 (Version None)
Quarter: 2004Q3

REPORT INFORMATION
  Report Type: 
  Country: None (occurrence: None)
  Receive Date: 20040714
  Receipt Date: 20040630
  Transmission Date: 20050211
  Serious: Yes (Hospitalization)
  Sender: FDA-Public Use
  Company Number: 2004SE03393

PATIENT
  Age: 63 Year
  Sex: Male

DRUGS (9)
  1. BLOPRESS [Suspect]
     Indication: HYPERTENSION
     Dosage: 4 MG QD PO
     Route: 048
     Dates: start: 20040521, end: 20040529
  2. DILTIAZEM HYDROCHLORIDE [Concomitant]
  3. FAMOTIDINE [Concomitant]
  4. ETIZOLAM [Concomitant]
  5. FLUNITRAZEPAM [Concomitant]
  6. TIZANIDINE HYDROCHLORIDE [Concomitant]
  7. ALPRAZOLAM [Concomitant]
  8. NABUMETONE [Concomitant]
  9. IMIGRAN [Concomitant]

REACTIONS (7)
  - DECREASED APPETITE [None]
  - DRUG INTERACTION [None]
  - EATING DISORDER [None]
  - HYPERTENSION [None]
  - RENAL IMPAIRMENT [None]
  - RHABDOMYOLYSIS [None]
  - VOMITING [None]
